FAERS Safety Report 5846362-X (Version None)
Quarter: 2008Q3

REPORT INFORMATION
  Report Type: 
  Country: None (occurrence: None)
  Receive Date: 20080815
  Receipt Date: 20080811
  Transmission Date: 20090109
  Serious: Yes (Death, Life-Threatening, Disabling)
  Sender: FDA-Public Use
  Company Number: DK-BAYER-DK-2006-022738

PATIENT
  Age: 54 Year
  Sex: Male

DRUGS (9)
  1. FLUDARABINE PHOSPHATE [Suspect]
     Indication: CHRONIC LYMPHOCYTIC LEUKAEMIA
     Route: 048
     Dates: start: 20060222, end: 20060224
  2. FLUDARABINE PHOSPHATE [Suspect]
     Route: 048
     Dates: start: 20060322, end: 20060324
  3. CYCLOPHOSPHAMIDE [Suspect]
     Indication: CHRONIC LYMPHOCYTIC LEUKAEMIA
     Dates: start: 20060222, end: 20060224
  4. CYCLOPHOSPHAMIDE [Suspect]
     Dates: start: 20060322, end: 20060324
  5. SULFAMETHOXAZOLE AND TRIMETHOPRIM [Concomitant]
     Dates: start: 20060222
  6. ALLOPURINOL [Concomitant]
     Dates: start: 20060222, end: 20060228
  7. ALLOPURINOL [Concomitant]
     Dates: start: 20060322, end: 20060329
  8. ONDANSETRON [Concomitant]
     Dates: start: 20060222, end: 20060225
  9. ONDANSETRON [Concomitant]
     Dates: start: 20060322, end: 20060325

REACTIONS (3)
  - APLASTIC ANAEMIA [None]
  - CEREBRAL HAEMORRHAGE [None]
  - FUNGAL INFECTION [None]
